FAERS Safety Report 22277769 (Version 1)
Quarter: 2023Q2

REPORT INFORMATION
  Report Type: Spontaneous
  Country: GB (occurrence: GB)
  Receive Date: 20230503
  Receipt Date: 20230503
  Transmission Date: 20230722
  Serious: Yes (Hospitalization, Other)
  Sender: FDA-Public Use
  Company Number: GB-RP-039012

PATIENT
  Age: 70 Year
  Sex: Female

DRUGS (1)
  1. ACYCLOVIR [Suspect]
     Active Substance: ACYCLOVIR
     Indication: Herpes zoster infection neurological
     Dosage: UNK
     Route: 042

REACTIONS (13)
  - End stage renal disease [Recovering/Resolving]
  - Neurotoxicity [Recovering/Resolving]
  - Hallucination [Recovering/Resolving]
  - Speech disorder [Recovering/Resolving]
  - Confusional state [Recovering/Resolving]
  - Visual tracking test abnormal [Recovering/Resolving]
  - Apraxia [Recovering/Resolving]
  - Myoclonus [Recovered/Resolved]
  - Drug metabolite level high [Recovering/Resolving]
  - Condition aggravated [Recovering/Resolving]
  - Agitation [Recovering/Resolving]
  - Extensor plantar response [Recovering/Resolving]
  - Hypertonia [Recovering/Resolving]
